FAERS Safety Report 8130731-1 (Version None)
Quarter: 2012Q1

REPORT INFORMATION
  Report Type: 
  Country: None (occurrence: None)
  Receive Date: 20120213
  Receipt Date: 20120202
  Transmission Date: 20120608
  Serious: No
  Sender: FDA-Public Use
  Company Number: US-BIOGENIDEC-2012BI004343

PATIENT
  Age: 54 Year
  Sex: Female

DRUGS (3)
  1. AVONEX [Concomitant]
     Indication: MULTIPLE SCLEROSIS
     Route: 030
  2. TYSABRI [Suspect]
     Indication: MULTIPLE SCLEROSIS
     Route: 042
     Dates: start: 20070205
  3. AVONEX [Concomitant]
     Route: 030
     Dates: start: 20070201

REACTIONS (4)
  - ALOPECIA [None]
  - HEADACHE [None]
  - INFLUENZA LIKE ILLNESS [None]
  - FATIGUE [None]
